FAERS Safety Report 21390245 (Version 1)
Quarter: 2022Q3

REPORT INFORMATION
  Report Type: Spontaneous
  Country: US (occurrence: US)
  Receive Date: 20220929
  Receipt Date: 20220929
  Transmission Date: 20221027
  Serious: No
  Sender: FDA-Public Use
  Company Number: US-INDIVIOR US-INDV-132997-2022

PATIENT
  Age: 19 Year
  Sex: Male

DRUGS (1)
  1. PERSERIS [Suspect]
     Active Substance: RISPERIDONE
     Indication: Bipolar disorder
     Dosage: 120 MILLIGRAM, QMO
     Route: 065

REACTIONS (1)
  - Off label use [Not Recovered/Not Resolved]
